FAERS Safety Report 24904855 (Version 1)
Quarter: 2025Q1

REPORT INFORMATION
  Report Type: Spontaneous
  Country: JP (occurrence: JP)
  Receive Date: 20250130
  Receipt Date: 20250130
  Transmission Date: 20250409
  Serious: Yes (Death, Hospitalization)
  Sender: AKEBIA THERAPEUTICS
  Company Number: JP-MTPC-MTPC2025-0001273

PATIENT
  Age: 95 Year
  Sex: Female

DRUGS (1)
  1. VADADUSTAT [Suspect]
     Active Substance: VADADUSTAT
     Indication: Nephrogenic anaemia
     Dosage: 300 MILLIGRAM, QD
     Route: 048
     Dates: start: 202403, end: 202412

REACTIONS (2)
  - Marasmus [Fatal]
  - Pneumonia [Fatal]

NARRATIVE: CASE EVENT DATE: 20241201
